FAERS Safety Report 9675348 (Version 3)
Quarter: 2014Q1

REPORT INFORMATION
  Report Type: Spontaneous
  Country: GB (occurrence: None)
  Receive Date: 20131105
  Receipt Date: 20140124
  Transmission Date: 20141002
  Serious: Yes (Hospitalization)
  Sender: FDA-Public Use
  Company Number: AG-2013-015718

PATIENT
  Age: 75 Year
  Sex: Male
  Weight: 107.4 kg

DRUGS (8)
  1. CHLORAMBUCIL [Suspect]
     Indication: CHRONIC LYMPHOCYTIC LEUKAEMIA
     Route: 048
     Dates: start: 20131015
  2. OFATUMUMAB [Suspect]
     Indication: CHRONIC LYMPHOCYTIC LEUKAEMIA
     Dosage: 300MG CYCLIC,INTRAVENOUS
     Route: 042
     Dates: start: 20131009
  3. PARACETAMOL (PARACETAMOL) [Concomitant]
  4. PREDNISOLONE (PREDNISOLONE) [Concomitant]
  5. ALLOPURINOL (ALLOPURINOL) [Concomitant]
  6. METOCLOPRAMIDE (METOCLOPRAMIDE) [Concomitant]
  7. ACYCLOVIR (ACICLOVIR) (ACICLOVIR) [Concomitant]
  8. CHLORPHIRAMINE [Concomitant]

REACTIONS (4)
  - Embolism [None]
  - Arthralgia [None]
  - Pallor [None]
  - Cold sweat [None]
